FAERS Safety Report 6731096-X (Version None)
Quarter: 2010Q2

REPORT INFORMATION
  Report Type: 
  Country: None (occurrence: None)
  Receive Date: 20100518
  Receipt Date: 20100512
  Transmission Date: 20101027
  Serious: Yes (Death, Hospitalization)
  Sender: FDA-Public Use
  Company Number: JP-ELI_LILLY_AND_COMPANY-JP201004002558

PATIENT
  Age: 62 Year
  Sex: Male
  Weight: 63 kg

DRUGS (11)
  1. ALIMTA [Suspect]
     Indication: NON-SMALL CELL LUNG CANCER
     Dosage: 600 MG, OTHER
     Route: 042
     Dates: start: 20091202, end: 20100115
  2. RAMELTEON [Concomitant]
     Indication: PROPHYLAXIS OF NAUSEA AND VOMITING
     Dosage: 0.3 MG, OTHER
     Route: 042
     Dates: start: 20091202, end: 20100115
  3. DECADRON [Concomitant]
     Indication: PROPHYLAXIS
     Dosage: UNK, OTHER
     Route: 042
     Dates: start: 20091202, end: 20100115
  4. SENNOSIDE [Concomitant]
     Dosage: 12 MG, 2/D
     Route: 048
  5. PANVITAN [Concomitant]
     Dosage: 1 G, DAILY (1/D)
     Route: 048
  6. HYDROXOCOBALAMIN ACETATE [Concomitant]
     Dosage: 1 G, DAILY (1/D)
     Route: 030
  7. TAKEPRON [Concomitant]
     Dosage: 30 MG, DAILY (1/D)
     Route: 048
  8. MAGMITT [Concomitant]
     Dosage: 500 MG, 3/D
     Route: 048
  9. POSTERISAN [Concomitant]
     Dosage: 2 G, 2/D
     Route: 062
  10. CYANOCOBALAMIN [Concomitant]
     Dosage: 500 UG, 3/D
     Route: 048
  11. OXYCONTIN [Concomitant]
     Dosage: 5 MG, 2/D
     Route: 048

REACTIONS (4)
  - DEHYDRATION [None]
  - FALL [None]
  - PANCYTOPENIA [None]
  - RENAL IMPAIRMENT [None]
